FAERS Safety Report 19174102 (Version 7)
Quarter: 2021Q3

REPORT INFORMATION
  Report Type: Report from Study
  Country: US (occurrence: US)
  Receive Date: 20210423
  Receipt Date: 20210909
  Transmission Date: 20211014
  Serious: Yes (Hospitalization, Other)
  Sender: FDA-Public Use
  Company Number: NVSC2021US091427

PATIENT
  Age: 79 Year
  Sex: Female

DRUGS (3)
  1. COSENTYX [Suspect]
     Active Substance: SECUKINUMAB
     Indication: SKIN DISORDER
     Dosage: 150 MG, Q2W
     Route: 058
     Dates: start: 201606
  2. COSENTYX [Suspect]
     Active Substance: SECUKINUMAB
     Dosage: 1 DF, Q2W
     Route: 065
  3. COSENTYX [Suspect]
     Active Substance: SECUKINUMAB
     Indication: PSORIATIC ARTHROPATHY
     Dosage: 300 MG, QMO
     Route: 058

REACTIONS (11)
  - Neck pain [Unknown]
  - Sepsis [Recovered/Resolved]
  - Product dose omission issue [Unknown]
  - Product use in unapproved indication [Unknown]
  - Infection [Unknown]
  - Rash [Unknown]
  - Gait disturbance [Unknown]
  - Skin plaque [Unknown]
  - Inappropriate schedule of product administration [Unknown]
  - Chills [Unknown]
  - Hypokinesia [Unknown]

NARRATIVE: CASE EVENT DATE: 201912
